FAERS Safety Report 9987936 (Version 1)
Quarter: 2014Q1

REPORT INFORMATION
  Report Type: Spontaneous
  Country: GB (occurrence: GB)
  Receive Date: 20140307
  Receipt Date: 20140307
  Transmission Date: 20141002
  Serious: Yes (Other)
  Sender: FDA-Public Use
  Company Number: PHHY2014GB026617

PATIENT
  Sex: 0

DRUGS (7)
  1. MORPHINE SULFATE [Suspect]
     Dosage: 20 MG, BD MOTHER DOSE
     Route: 064
  2. MORPHINE SULFATE [Suspect]
     Dosage: 250 MG, QD, MOTHER DOSE
     Route: 064
  3. MORPHINE SULFATE [Suspect]
     Dosage: 10 MG/H, MOTHER DOSE
     Route: 064
  4. KETAMINE [Suspect]
     Route: 064
  5. CLONIDINE [Suspect]
     Route: 064
  6. OXYNORM [Suspect]
     Dosage: 50 MG, 2 TO 4 HOURLY MOTHER DOSE
     Route: 064
  7. ANAESTHETICS [Suspect]

REACTIONS (3)
  - Renal cyst [Unknown]
  - Drug withdrawal syndrome neonatal [Unknown]
  - Foetal exposure during pregnancy [Unknown]
